FAERS Safety Report 17287192 (Version 1)
Quarter: 2020Q1

REPORT INFORMATION
  Report Type: Spontaneous
  Country: US (occurrence: US)
  Receive Date: 20200120
  Receipt Date: 20200120
  Transmission Date: 20200409
  Serious: Yes (Other)
  Sender: FDA-Public Use
  Company Number: US-AMGEN-USASP2020007264

PATIENT

DRUGS (2)
  1. FILGRASTIM [Suspect]
     Active Substance: FILGRASTIM
     Indication: FEBRILE NEUTROPENIA
     Dosage: MEAN DAILY DOSE 412 UG (MEDIAN, 360 UG; RANGE, 280-1200 UG)
     Route: 065
  2. FILGRASTIM [Suspect]
     Active Substance: FILGRASTIM
     Dosage: MEAN DAILY DOSE 375 UG (MEDIAN, 360 UG; RANGE, 210-600 UG)
     Route: 065

REACTIONS (2)
  - Infection [Unknown]
  - Pyrexia [Unknown]
